FAERS Safety Report 8214824-6 (Version None)
Quarter: 2012Q1

REPORT INFORMATION
  Report Type: 
  Country: None (occurrence: None)
  Receive Date: 20120313
  Receipt Date: 20120228
  Transmission Date: 20120608
  Serious: Yes (Congenital Anomaly)
  Sender: FDA-Public Use
  Company Number: VALP20120005

PATIENT

DRUGS (2)
  1. VALPROIC ACID [Suspect]
     Indication: MATERNAL EXPOSURE DURING PREGNANCY
     Dosage: 750 MG, TRANSPLACENTAL
     Route: 064
  2. LAMOTRIGINE [Suspect]
     Indication: MATERNAL EXPOSURE DURING PREGNANCY
     Dosage: 750 MG, TRANSPLACENTAL
     Route: 064

REACTIONS (3)
  - CONGENITAL CYSTIC KIDNEY DISEASE [None]
  - CRYPTORCHISM [None]
  - MATERNAL DRUGS AFFECTING FOETUS [None]
